FAERS Safety Report 5305201-6 (Version None)
Quarter: 2007Q1

REPORT INFORMATION
  Report Type: 
  Country: None (occurrence: None)
  Receive Date: 20070201
  Receipt Date: 20061113
  Transmission Date: 20070707
  Serious: No
  Sender: FDA-Public Use
  Company Number: 2006PV025152

PATIENT
  Age: 74 Year
  Sex: Female
  Weight: 97.5234 kg

DRUGS (5)
  1. BYETTA [Suspect]
     Indication: DIABETES MELLITUS NON-INSULIN-DEPENDENT
     Dosage: SEE IMAGE
     Route: 058
     Dates: start: 20060101, end: 20060101
  2. BYETTA [Suspect]
     Indication: DIABETES MELLITUS NON-INSULIN-DEPENDENT
     Dosage: SEE IMAGE
     Route: 058
     Dates: start: 20060101, end: 20060101
  3. BYETTA [Suspect]
     Indication: DIABETES MELLITUS NON-INSULIN-DEPENDENT
     Dosage: SEE IMAGE
     Route: 058
     Dates: start: 20061113
  4. ACTOS [Concomitant]
  5. INSULIN [Concomitant]

REACTIONS (6)
  - ACCIDENTAL NEEDLE STICK [None]
  - BLOOD GLUCOSE DECREASED [None]
  - DIZZINESS [None]
  - NAUSEA [None]
  - PANIC REACTION [None]
  - TREMOR [None]
